FAERS Safety Report 9187824 (Version 1)
Quarter: 2013Q1

REPORT INFORMATION
  Report Type: Spontaneous
  Country: US (occurrence: US)
  Receive Date: 20130325
  Receipt Date: 20130325
  Transmission Date: 20140127
  Serious: No
  Sender: FDA-Public Use
  Company Number: US-ASTRAZENECA-2013SE16431

PATIENT
  Age: 65 Year
  Sex: Female

DRUGS (5)
  1. TENORMIN [Suspect]
     Indication: HYPERTENSION
     Route: 048
     Dates: start: 1988
  2. TENORMIN [Suspect]
     Indication: HYPERTENSION
     Dosage: ATENOLOL (GENERIC), 100 MG DAILY
     Route: 048
  3. TENORMIN [Suspect]
     Indication: HYPERTENSION
     Route: 048
  4. UNSPECIFIED DIABETES MEDICATION [Concomitant]
     Indication: DIABETES MELLITUS
  5. LIPITOR [Concomitant]

REACTIONS (3)
  - Blood cholesterol increased [Unknown]
  - Headache [Unknown]
  - Nausea [Unknown]
